FAERS Safety Report 25955543 (Version 1)
Quarter: 2025Q4

REPORT INFORMATION
  Report Type: Spontaneous
  Country: JP (occurrence: JP)
  Receive Date: 20251024
  Receipt Date: 20251024
  Transmission Date: 20260119
  Serious: Yes (Hospitalization, Other)
  Sender: ROCHE
  Company Number: JP-CHUGAI-2025033081

PATIENT
  Age: 6 Decade
  Sex: Female
  Weight: 29 kg

DRUGS (3)
  1. CELLCEPT [Suspect]
     Active Substance: MYCOPHENOLATE MOFETIL
     Indication: Prophylaxis against transplant rejection
     Dosage: UNK
     Route: 050
  2. RITUXIMAB [Suspect]
     Active Substance: RITUXIMAB
     Indication: Prophylaxis against transplant rejection
     Dosage: UNK
     Route: 065
  3. TACROLIMUS [Suspect]
     Active Substance: TACROLIMUS
     Indication: Prophylaxis against transplant rejection
     Dosage: UNK
     Route: 050

REACTIONS (7)
  - Subcapsular renal haematoma [Unknown]
  - Disseminated intravascular coagulation [Unknown]
  - Pseudomonal sepsis [Unknown]
  - Pyelonephritis [Recovering/Resolving]
  - Transplant abscess [Unknown]
  - Hypophagia [Unknown]
  - Urinary tract infection pseudomonal [Unknown]
